FAERS Safety Report 5506099-3 (Version None)
Quarter: 2007Q4

REPORT INFORMATION
  Report Type: 
  Country: None (occurrence: None)
  Receive Date: 20071105
  Receipt Date: 20071030
  Transmission Date: 20080405
  Serious: Yes (Death, Other)
  Sender: FDA-Public Use
  Company Number: PL-BRISTOL-MYERS SQUIBB COMPANY-13964531

PATIENT
  Age: 42 Year
  Sex: Male

DRUGS (1)
  1. ETOPOSIDE [Suspect]
     Dates: start: 19950313, end: 19950620

REACTIONS (3)
  - DEATH [None]
  - DISEASE PROGRESSION [None]
  - DRUG INEFFECTIVE [None]
